FAERS Safety Report 9934105 (Version 1)
Quarter: 2014Q1

REPORT INFORMATION
  Report Type: Spontaneous
  Country: US (occurrence: US)
  Receive Date: 20140228
  Receipt Date: 20140228
  Transmission Date: 20141002
  Serious: Yes (Hospitalization)
  Sender: FDA-Public Use
  Company Number: US-BAYER-2014-029237

PATIENT
  Age: 20 Year
  Sex: Female
  Weight: 74.38 kg

DRUGS (5)
  1. MIRENA [Suspect]
     Indication: CONTRACEPTION
     Dosage: 20 MCG/24HR, CONT
     Route: 015
     Dates: start: 200901, end: 201010
  2. ALBUTEROL [Concomitant]
     Indication: ASTHMA
     Dosage: UNK
     Dates: start: 2000
  3. LORTAB [Concomitant]
  4. MOTRIN [Concomitant]
  5. DOXYCYCLINE [Concomitant]

REACTIONS (8)
  - Uterine perforation [None]
  - Injury [None]
  - Abdominal pain lower [None]
  - Menorrhagia [None]
  - Menstrual disorder [None]
  - Device issue [None]
  - Muscle spasms [None]
  - Abdominal pain [None]
